FAERS Safety Report 4374586-X (Version None)
Quarter: 2004Q2

REPORT INFORMATION
  Report Type: 
  Country: None (occurrence: None)
  Receive Date: 20040609
  Receipt Date: 20040604
  Transmission Date: 20050107
  Serious: Yes (Hospitalization)
  Sender: FDA-Public Use
  Company Number: US-MERCK-0406USA00492

PATIENT
  Age: 40 Year
  Sex: Male

DRUGS (3)
  1. [THERAPY UNSPECIFIED] [Concomitant]
     Route: 065
  2. ZITHROMAX [Suspect]
     Route: 065
  3. ZOCOR [Suspect]
     Indication: HYPERCHOLESTEROLAEMIA
     Route: 048

REACTIONS (5)
  - BRONCHITIS [None]
  - DRUG INTERACTION [None]
  - INFECTION [None]
  - RENAL FAILURE [None]
  - RHABDOMYOLYSIS [None]
